FAERS Safety Report 10418927 (Version 1)
Quarter: 2014Q3

REPORT INFORMATION
  Report Type: Spontaneous
  Country: DE (occurrence: None)
  Receive Date: 20140827
  Receipt Date: 20140827
  Transmission Date: 20150326
  Serious: Yes (Hospitalization)
  Sender: FDA-Public Use
  Company Number: DE-20140142

PATIENT
  Age: 50 Year
  Sex: Male
  Weight: 80 kg

DRUGS (1)
  1. DOTAREM [Suspect]
     Active Substance: GADOTERATE MEGLUMINE
     Indication: NUCLEAR MAGNETIC RESONANCE IMAGING
     Route: 042
     Dates: start: 20140812, end: 20140812

REACTIONS (5)
  - Dysaesthesia [None]
  - Blood pressure increased [None]
  - Cold sweat [None]
  - Injection site pain [None]
  - Tremor [None]

NARRATIVE: CASE EVENT DATE: 20140812
